FAERS Safety Report 15733895 (Version 1)
Quarter: 2018Q4

REPORT INFORMATION
  Report Type: Spontaneous
  Country: US (occurrence: US)
  Receive Date: 20181218
  Receipt Date: 20181218
  Transmission Date: 20190205
  Serious: No
  Sender: FDA-Public Use
  Company Number: US-PFIZER INC-2018517438

PATIENT
  Age: 75 Year
  Sex: Male

DRUGS (1)
  1. GENOTROPIN MQ [Suspect]
     Active Substance: SOMATROPIN
     Dosage: 0.4 MG, DAILY

REACTIONS (9)
  - Blood triglycerides decreased [Unknown]
  - High density lipoprotein decreased [Unknown]
  - Blood urea increased [Unknown]
  - LDL/HDL ratio increased [Unknown]
  - Thyroxine free decreased [Unknown]
  - Blood creatinine increased [Unknown]
  - Tri-iodothyronine free decreased [Unknown]
  - Blood glucose increased [Unknown]
  - Glomerular filtration rate decreased [Unknown]
